FAERS Safety Report 17675875 (Version 1)
Quarter: 2020Q2

REPORT INFORMATION
  Report Type: Report from Study
  Country: JP (occurrence: JP)
  Receive Date: 20200416
  Receipt Date: 20200416
  Transmission Date: 20200714
  Serious: Yes (Hospitalization)
  Sender: FDA-Public Use
  Company Number: JP-TEVA-2020-JP-1224862

PATIENT
  Age: 36 Year
  Sex: Female

DRUGS (2)
  1. ALEDRONATE [Suspect]
     Active Substance: ALENDRONATE SODIUM
     Indication: PROPHYLAXIS
     Dosage: FROM 3.5 YEARS
     Route: 065
  2. PREDNISOLONE. [Suspect]
     Active Substance: PREDNISOLONE
     Indication: SYSTEMIC LUPUS ERYTHEMATOSUS
     Dosage: 14 MILLIGRAM DAILY; FROM 3.5 YEARS
     Route: 065

REACTIONS (1)
  - Atypical femur fracture [Recovered/Resolved]
